FAERS Safety Report 4483818-9 (Version None)
Quarter: 2004Q4

REPORT INFORMATION
  Report Type: 
  Country: None (occurrence: None)
  Receive Date: 20041025
  Receipt Date: 20041014
  Transmission Date: 20050328
  Serious: Yes (Other)
  Sender: FDA-Public Use
  Company Number: 200417867US

PATIENT
  Sex: Female

DRUGS (2)
  1. KETEK [Suspect]
     Indication: BRONCHITIS
     Route: 048
  2. ANTIHYPERTENSIVES [Concomitant]
     Dosage: DOSE: NOT PROVIDED

REACTIONS (2)
  - DIZZINESS [None]
  - HYPERTENSION [None]
